FAERS Safety Report 4410993-4 (Version None)
Quarter: 2004Q3

REPORT INFORMATION
  Report Type: 
  Country: None (occurrence: None)
  Receive Date: 20040729
  Receipt Date: 20040609
  Transmission Date: 20050211
  Serious: Yes (Congenital Anomaly)
  Sender: FDA-Public Use
  Company Number: DE-GLAXOSMITHKLINE-D0043961A

PATIENT
  Age: 30 Year
  Sex: Female

DRUGS (3)
  1. ZOVIRAX [Suspect]
     Dosage: 400MG TWICE PER DAY
     Route: 048
     Dates: start: 19950101, end: 20021101
  2. L-THYROXIN-HENNING [Concomitant]
     Dates: start: 20020701
  3. YASMIN [Concomitant]

REACTIONS (5)
  - ABORTION INDUCED [None]
  - CANDIDIASIS [None]
  - DRUG EXPOSURE DURING PREGNANCY [None]
  - POLYHYDRAMNIOS [None]
  - VAGINITIS [None]
